FAERS Safety Report 25821328 (Version 1)
Quarter: 2025Q3

REPORT INFORMATION
  Report Type: Spontaneous
  Country: EU (occurrence: EU)
  Receive Date: 20250919
  Receipt Date: 20250919
  Transmission Date: 20251021
  Serious: Yes (Other)
  Sender: SANDOZ
  Company Number: None

PATIENT
  Age: 49 Year
  Sex: Female

DRUGS (5)
  1. IMURAN [Suspect]
     Active Substance: AZATHIOPRINE
     Indication: Eczema
     Route: 048
     Dates: start: 20221110
  2. METHOTREXATE [Suspect]
     Active Substance: METHOTREXATE
     Indication: Eczema
     Route: 048
     Dates: start: 20200821, end: 2020
  3. METHOTREXATE [Suspect]
     Active Substance: METHOTREXATE
     Indication: Psoriasis
     Dosage: 7.5 MG, QW
     Route: 048
     Dates: start: 20210125, end: 20210311
  4. METHOTREXATE [Suspect]
     Active Substance: METHOTREXATE
     Indication: Eczema
     Route: 065
     Dates: start: 2020, end: 20210112
  5. METHOTREXATE [Suspect]
     Active Substance: METHOTREXATE
     Indication: Psoriasis

REACTIONS (1)
  - Cervix carcinoma [Unknown]

NARRATIVE: CASE EVENT DATE: 20240701
